FAERS Safety Report 11180018 (Version 1)
Quarter: 2015Q2

REPORT INFORMATION
  Report Type: Spontaneous
  Country: GB (occurrence: None)
  Receive Date: 20150609
  Receipt Date: 20150609
  Transmission Date: 20150821
  Serious: Yes (Death, Hospitalization)
  Sender: FDA-Public Use
  Company Number: FK201502613

PATIENT
  Age: 58 Year
  Sex: Male

DRUGS (7)
  1. DOXORUBICIN (DOXORUBICIN) [Concomitant]
     Active Substance: DOXORUBICIN
  2. METHOTREXATE (MANUFACTURER UNKNOWN) (METHOTREXATE) (METHOTREXATE) [Suspect]
     Active Substance: METHOTREXATE
     Indication: DIFFUSE LARGE B-CELL LYMPHOMA
     Route: 037
  3. CYTARABINE (CYTARABINE) [Concomitant]
     Active Substance: CYTARABINE
  4. ETOPOSIDE (ETOPOSIDE) [Concomitant]
     Active Substance: ETOPOSIDE
  5. CYCLOPHOSPHAMIDE (CYCLOPHOSPHAMIDE) [Concomitant]
     Active Substance: CYCLOPHOSPHAMIDE
  6. VINCRISTINE (VINCRISTINE) [Concomitant]
     Active Substance: VINCRISTINE
  7. IFOSFAMIDE (IFOSFAMIDE) [Concomitant]
     Active Substance: IFOSFAMIDE

REACTIONS (4)
  - Sepsis [None]
  - Cerebral haemorrhage [None]
  - Subdural hygroma [None]
  - Thrombocytopenia [None]
